FAERS Safety Report 8844360 (Version 2)
Quarter: 2012Q4

REPORT INFORMATION
  Report Type: 
  Country: US (occurrence: None)
  Receive Date: 20121017
  Receipt Date: 20121019
  Transmission Date: 20130627
  Serious: Yes (Other)
  Sender: FDA-Public Use
  Company Number: None

PATIENT
  Age: 54 Year
  Sex: Female
  Weight: 90.72 kg

DRUGS (2)
  1. METHYLPREDNISOLONE [Suspect]
     Dates: start: 20120406, end: 20120413
  2. DEXAMETHASONE [Suspect]

REACTIONS (5)
  - Blood glucose increased [None]
  - Cervical spinal stenosis [None]
  - Nervous system disorder [None]
  - Hypoaesthesia [None]
  - Paraesthesia [None]
